FAERS Safety Report 5067545-5 (Version None)
Quarter: 2006Q3

REPORT INFORMATION
  Report Type: 
  Country: None (occurrence: None)
  Receive Date: 20060731
  Receipt Date: 20060713
  Transmission Date: 20061208
  Serious: Yes (Other)
  Sender: FDA-Public Use
  Company Number: US200607002430

PATIENT
  Age: 57 Year
  Sex: Male

DRUGS (5)
  1. HUMALOG PEN [Suspect]
     Indication: DIABETES MELLITUS
     Dates: start: 20020101
  2. INSULIN [Suspect]
     Indication: DIABETES MELLITUS
     Dates: start: 19971101
  3. INSULIN [Suspect]
     Indication: DIABETES MELLITUS
     Dates: start: 19771101
  4. LANTUS [Concomitant]
  5. HUMALOG PEN [Concomitant]

REACTIONS (7)
  - BLOOD GLUCOSE DECREASED [None]
  - BLOOD GLUCOSE INCREASED [None]
  - DEVICE FAILURE [None]
  - DIZZINESS [None]
  - INJECTION SITE BRUISING [None]
  - LOSS OF CONSCIOUSNESS [None]
  - PHARMACEUTICAL PRODUCT COMPLAINT [None]
